FAERS Safety Report 17811398 (Version 1)
Quarter: 2020Q2

REPORT INFORMATION
  Report Type: Spontaneous
  Country: US (occurrence: US)
  Receive Date: 20200521
  Receipt Date: 20200521
  Transmission Date: 20200714
  Serious: No
  Sender: FDA-Public Use
  Company Number: US-PFIZER INC-2020199798

PATIENT
  Age: 82 Year
  Sex: Male

DRUGS (2)
  1. LYRICA CR [Suspect]
     Active Substance: PREGABALIN
     Indication: TRIGEMINAL NEURALGIA
     Dosage: 330 MG, DAILY
  2. LYRICA CR [Suspect]
     Active Substance: PREGABALIN
     Dosage: 330 MG, 1X/DAY (TWO 165MG TABLETS TOGETHER AFTER DINNER)

REACTIONS (2)
  - Anxiety [Unknown]
  - Circumstance or information capable of leading to medication error [Unknown]
